APPROVED DRUG PRODUCT: PROSCAR
Active Ingredient: FINASTERIDE
Strength: 5MG
Dosage Form/Route: TABLET;ORAL
Application: N020180 | Product #001 | TE Code: AB
Applicant: ORGANON LLC A SUB OF ORGANON AND CO
Approved: Jun 19, 1992 | RLD: Yes | RS: Yes | Type: RX